FAERS Safety Report 9877996 (Version 1)
Quarter: 2014Q1

REPORT INFORMATION
  Report Type: Spontaneous
  Country: US (occurrence: US)
  Receive Date: 20140206
  Receipt Date: 20140206
  Transmission Date: 20141002
  Serious: No
  Sender: FDA-Public Use
  Company Number: US-BAYER-2014-016822

PATIENT
  Age: 44 Year
  Sex: Female

DRUGS (1)
  1. FINACEA [Suspect]

REACTIONS (1)
  - Paraesthesia [None]
